FAERS Safety Report 22059993 (Version 1)
Quarter: 2023Q1

REPORT INFORMATION
  Report Type: Spontaneous
  Country: US (occurrence: None)
  Receive Date: 20230303
  Receipt Date: 20230303
  Transmission Date: 20230418
  Serious: Yes (Hospitalization)
  Sender: FDA-Public Use
  Company Number: US-ROCHE-3295568

PATIENT
  Sex: Male

DRUGS (1)
  1. RITUXAN [Suspect]
     Active Substance: RITUXIMAB
     Indication: Non-Hodgkin^s lymphoma
     Dosage: PRESCRIBED 12 DOSES EVERY 8 WEEKS
     Route: 065

REACTIONS (4)
  - White blood cell count abnormal [Unknown]
  - Body temperature fluctuation [Unknown]
  - Heart rate irregular [Unknown]
  - Blood test abnormal [Unknown]
